FAERS Safety Report 8386575-9 (Version None)
Quarter: 2012Q2

REPORT INFORMATION
  Report Type: 
  Country: None (occurrence: None)
  Receive Date: 20120525
  Receipt Date: 20110915
  Transmission Date: 20120825
  Serious: No
  Sender: FDA-Public Use
  Company Number: US-GLAXOSMITHKLINE-A0944791A

PATIENT
  Age: 52 Year
  Sex: Female

DRUGS (8)
  1. SALINE [Concomitant]
  2. SALINE [Concomitant]
  3. ALPRAZOLAM [Concomitant]
  4. ACTONEL [Concomitant]
  5. LEVOXYL [Concomitant]
  6. ASTEPRO [Concomitant]
  7. VERAMYST [Suspect]
     Indication: RHINITIS
     Dosage: 2SPR TWICE PER DAY
     Route: 045
     Dates: start: 20100201, end: 20110902
  8. CALCIUM + VITAMIN D [Concomitant]

REACTIONS (8)
  - TREMOR [None]
  - CLUMSINESS [None]
  - FEELING ABNORMAL [None]
  - DEPRESSION [None]
  - NASAL DISCOMFORT [None]
  - PANIC ATTACK [None]
  - AGITATION [None]
  - NASAL DRYNESS [None]
